FAERS Safety Report 6438260-8 (Version None)
Quarter: 2009Q4

REPORT INFORMATION
  Report Type: 
  Country: None (occurrence: None)
  Receive Date: 20091112
  Receipt Date: 20091030
  Transmission Date: 20100525
  Serious: Yes (Other)
  Sender: FDA-Public Use
  Company Number: PHHY2009JP46347

PATIENT

DRUGS (1)
  1. LOCHOL [Suspect]
     Dosage: UNK
     Route: 048

REACTIONS (1)
  - PANCYTOPENIA [None]
